FAERS Safety Report 7210325-2 (Version None)
Quarter: 2011Q1

REPORT INFORMATION
  Report Type: 
  Country: None (occurrence: None)
  Receive Date: 20110105
  Receipt Date: 20101227
  Transmission Date: 20110831
  Serious: Yes (Hospitalization, Other)
  Sender: FDA-Public Use
  Company Number: JP-PFIZER INC-JP-WYE-G06422210

PATIENT
  Age: 56 Year
  Sex: Female

DRUGS (9)
  1. LANSOPRAZOLE [Suspect]
     Indication: PROPHYLAXIS
     Dosage: 15.0 MG, 1X/DAY
     Route: 048
     Dates: start: 20100513, end: 20100713
  2. DIAZEPAM [Concomitant]
     Indication: NEUROSIS
     Dosage: 5 MG, AS NEEDED
     Route: 048
  3. URSO 250 [Concomitant]
     Dosage: 200 MG,
     Route: 048
     Dates: start: 19900101
  4. LIPITOR [Concomitant]
     Indication: HYPERLIPIDAEMIA
     Dosage: 5 MG, 1X/DAY
     Route: 048
     Dates: start: 19900101
  5. GABAPENTIN [Concomitant]
     Indication: ARTHRALGIA
     Dosage: 200.0 MG, 3X/DAY
     Route: 048
     Dates: start: 20100501, end: 20100713
  6. NU LOTAN [Concomitant]
     Indication: HYPERTENSION
     Dosage: 25 MG, 1X/DAY
     Route: 048
     Dates: start: 20100201
  7. LANSOPRAZOLE [Suspect]
     Indication: ABDOMINAL PAIN UPPER
  8. CELECOXIB [Concomitant]
     Indication: ARTHRALGIA
     Dosage: 200 MG, 2X/DAY
     Route: 048
     Dates: start: 20100501, end: 20100713
  9. LYPLE [Concomitant]
     Indication: ARTHRALGIA
     Dosage: 1.0 DF, WEEKLY
     Route: 041
     Dates: start: 20100501, end: 20100713

REACTIONS (1)
  - SYSTEMIC LUPUS ERYTHEMATOSUS [None]
